FAERS Safety Report 20722046 (Version 1)
Quarter: 2022Q2

REPORT INFORMATION
  Report Type: Spontaneous
  Country: US (occurrence: US)
  Receive Date: 20220418
  Receipt Date: 20220418
  Transmission Date: 20220721
  Serious: Yes (Other)
  Sender: FDA-Public Use
  Company Number: US-ADVANTICEHEALTH-2022-US-008019

PATIENT
  Age: 64 Year
  Sex: Female
  Weight: 44.45 kg

DRUGS (7)
  1. NEW SKIN BANDAGE [Suspect]
     Active Substance: BENZETHONIUM CHLORIDE
     Indication: Skin abrasion
     Dosage: APPLIED PER PACKAGE DIRECTIONS TWICE
     Route: 061
     Dates: start: 20211213, end: 20211213
  2. VITAMIN D [Concomitant]
     Active Substance: VITAMIN D NOS
  3. DULOXETINE [Concomitant]
     Active Substance: DULOXETINE
  4. ESTRADIOL [Concomitant]
     Active Substance: ESTRADIOL
  5. Medoxyprogesterone [Concomitant]
  6. LORAZEPAM [Concomitant]
     Active Substance: LORAZEPAM
  7. ALENDRONATE SODIUM [Concomitant]
     Active Substance: ALENDRONATE SODIUM

REACTIONS (7)
  - Application site pain [Not Recovered/Not Resolved]
  - Application site erythema [Not Recovered/Not Resolved]
  - Application site nodule [Not Recovered/Not Resolved]
  - Application site wound [Recovered/Resolved]
  - Application site discharge [Recovered/Resolved]
  - Application site scar [Not Recovered/Not Resolved]
  - Skin cancer [Not Recovered/Not Resolved]

NARRATIVE: CASE EVENT DATE: 20211201
